FAERS Safety Report 14304458 (Version 1)
Quarter: 2017Q4

REPORT INFORMATION
  Report Type: Spontaneous
  Country: JP (occurrence: JP)
  Receive Date: 20171219
  Receipt Date: 20171219
  Transmission Date: 20180321
  Serious: Yes (Other)
  Sender: FDA-Public Use
  Company Number: JP-OTSUKA-03100-JPN-07-0032

PATIENT
  Age: 39 Year
  Sex: Male
  Weight: 95 kg

DRUGS (19)
  1. LEVOMEPROMAZINE [Concomitant]
     Active Substance: LEVOMEPROMAZINE
     Indication: INSOMNIA
     Dosage: 35 MG, UNK
     Route: 048
  2. SEROQUEL [Concomitant]
     Active Substance: QUETIAPINE FUMARATE
     Dosage: 250 MG, BID
     Route: 048
     Dates: start: 20060801, end: 20060814
  3. SEROQUEL [Concomitant]
     Active Substance: QUETIAPINE FUMARATE
     Route: 048
     Dates: start: 20060829, end: 20061016
  4. ABILIFY [Suspect]
     Active Substance: ARIPIPRAZOLE
     Dosage: 7.5 MG, BID
     Route: 048
     Dates: start: 20060919, end: 20061030
  5. SEROQUEL [Concomitant]
     Active Substance: QUETIAPINE FUMARATE
     Route: 048
     Dates: start: 20061017, end: 20061030
  6. RILMAZAFONE HCL [Concomitant]
     Indication: INSOMNIA
     Dosage: 1 MG, UNK
     Route: 048
  7. ABILIFY [Suspect]
     Active Substance: ARIPIPRAZOLE
     Dosage: 6 MG, BID
     Route: 048
     Dates: start: 20061031, end: 20070109
  8. SEROQUEL [Concomitant]
     Active Substance: QUETIAPINE FUMARATE
     Route: 048
     Dates: end: 20060731
  9. ABILIFY [Suspect]
     Active Substance: ARIPIPRAZOLE
     Dosage: 3 MG, BID
     Route: 048
     Dates: start: 20060718, end: 20060731
  10. ABILIFY [Suspect]
     Active Substance: ARIPIPRAZOLE
     Dosage: 6 MG, BID
     Route: 048
     Dates: start: 20060801, end: 20060814
  11. ABILIFY [Suspect]
     Active Substance: ARIPIPRAZOLE
     Dosage: 7.5 MG, BID
     Route: 048
     Dates: start: 20060815, end: 20060828
  12. ABILIFY [Suspect]
     Active Substance: ARIPIPRAZOLE
     Dosage: 9 MG, BID
     Route: 048
     Dates: start: 20060829, end: 20060918
  13. SEROQUEL [Concomitant]
     Active Substance: QUETIAPINE FUMARATE
     Route: 048
     Dates: start: 20060815, end: 20060828
  14. SEROQUEL [Concomitant]
     Active Substance: QUETIAPINE FUMARATE
     Route: 048
     Dates: start: 20061031
  15. LEVOTOMIN [Concomitant]
     Active Substance: LEVOMEPROMAZINE
     Dosage: 35 MG, QD
     Route: 048
  16. BEZATOL SR [Concomitant]
     Active Substance: BEZAFIBRATE
     Dosage: 200 MG, BID
     Route: 048
     Dates: start: 19981110
  17. RHYTHMY [Concomitant]
     Active Substance: RILMAZAFONE HYDROCHLORIDE
     Dosage: 1 MG, QD
     Route: 048
  18. SERMION [Concomitant]
     Active Substance: NICERGOLINE
     Dosage: 5 MG, TID
     Route: 048
  19. QUETIAPINE. [Concomitant]
     Active Substance: QUETIAPINE
     Dosage: 500MG 1AUG06-14AUG, 400MG 15AUG-28AUG, 300MG 29AUG-16OCT, 400MG 17OCT-30OCT, 300MG FROM 31OCT06
     Route: 048
     Dates: start: 20061031

REACTIONS (1)
  - Hepatic function abnormal [Recovering/Resolving]

NARRATIVE: CASE EVENT DATE: 20070109
